FAERS Safety Report 18322310 (Version 23)
Quarter: 2021Q3

REPORT INFORMATION
  Report Type: Spontaneous
  Country: BR (occurrence: BR)
  Receive Date: 20200928
  Receipt Date: 20210921
  Transmission Date: 20211014
  Serious: Yes (Other)
  Sender: FDA-Public Use
  Company Number: BR-IPSEN BIOPHARMACEUTICALS, INC.-2020-17902

PATIENT
  Age: 44 Year
  Sex: Female
  Weight: 80 kg

DRUGS (12)
  1. CABERGOLINE. [Concomitant]
     Active Substance: CABERGOLINE
     Indication: INSULIN-LIKE GROWTH FACTOR ABNORMAL
     Route: 048
  2. CABERGOLINE. [Concomitant]
     Active Substance: CABERGOLINE
     Dosage: 2 TABLETS/WEEK (1 TABLET ON TUESDAY AND 1 TABLET ON THURSDAY, USUALLY AT NIGHT); ONGOING
     Route: 048
     Dates: start: 201909
  3. AMITIPTYLINE [Concomitant]
     Active Substance: AMITRIPTYLINE
     Dosage: 2 TABLETS PER DAY
  4. CABERGOLINE. [Concomitant]
     Active Substance: CABERGOLINE
     Indication: BLOOD GROWTH HORMONE ABNORMAL
     Route: 048
  5. SOMATULINE AUTOGEL [Suspect]
     Active Substance: LANREOTIDE ACETATE
     Indication: PITUITARY TUMOUR
     Dosage: 120 MG EVERY 28 DAYS
     Route: 058
     Dates: start: 2018, end: 20210205
  6. LEVOTHYROXINE. [Concomitant]
     Active Substance: LEVOTHYROXINE
     Indication: HYPOTHYROIDISM
     Dosage: 1 TABLET/DAY, NINE YEARS AGO. ONGOING
     Route: 048
     Dates: start: 2011
  7. AMITIPTYLINE [Concomitant]
     Active Substance: AMITRIPTYLINE
     Dosage: 3 TABLETS PER DAY
  8. ROSUVASTATIN. [Concomitant]
     Active Substance: ROSUVASTATIN
     Indication: BLOOD CHOLESTEROL ABNORMAL
     Dosage: 2 TABLET/DAY; ONGOING
     Route: 048
     Dates: start: 202008
  9. CABERGOLINE. [Concomitant]
     Active Substance: CABERGOLINE
     Dosage: 4 TABLETS PER WEEK
     Route: 048
     Dates: start: 20210609
  10. CICLOPRIMOGYNA [Concomitant]
     Indication: HORMONE REPLACEMENT THERAPY
     Dosage: 1 TABLET/DAY, MORE THAN A YEAR; ONGOING
     Route: 048
  11. CIPROFIBRATE [Concomitant]
     Active Substance: CIPROFIBRATE
     Indication: BLOOD TRIGLYCERIDES ABNORMAL
     Dosage: 1 TABLET/DAY; ONGOING
     Route: 048
     Dates: start: 202008
  12. PREDNISONE. [Concomitant]
     Active Substance: PREDNISONE
     Indication: ADRENAL DISORDER
     Dosage: 2 TABLET/DAY, MORE THAN 1 YEAR; ONGOING
     Route: 048

REACTIONS (23)
  - Hypotension [Recovered/Resolved]
  - Headache [Recovered/Resolved]
  - Nausea [Recovered/Resolved]
  - Hypoprolactinaemia [Recovering/Resolving]
  - Headache [Not Recovered/Not Resolved]
  - Radiation alopecia [Unknown]
  - Dizziness [Not Recovered/Not Resolved]
  - Product prescribing issue [Unknown]
  - Eye pain [Recovered/Resolved]
  - Insulin-like growth factor increased [Not Recovered/Not Resolved]
  - Neoplasm progression [Not Recovered/Not Resolved]
  - Pain in extremity [Recovered/Resolved]
  - Vertigo [Not Recovered/Not Resolved]
  - Blood triglycerides increased [Not Recovered/Not Resolved]
  - Product storage error [Unknown]
  - Blood growth hormone increased [Not Recovered/Not Resolved]
  - Tinnitus [Not Recovered/Not Resolved]
  - Fatigue [Not Recovered/Not Resolved]
  - Blood cholesterol increased [Not Recovered/Not Resolved]
  - Dizziness [Recovered/Resolved]
  - Labyrinthitis [Not Recovered/Not Resolved]
  - Arthralgia [Recovered/Resolved]
  - Constipation [Not Recovered/Not Resolved]

NARRATIVE: CASE EVENT DATE: 2018
